FAERS Safety Report 4560049-5 (Version None)
Quarter: 2005Q1

REPORT INFORMATION
  Report Type: 
  Country: None (occurrence: None)
  Receive Date: 20050125
  Receipt Date: 20050113
  Transmission Date: 20050727
  Serious: Yes (Other)
  Sender: FDA-Public Use
  Company Number: US-JNJFOC-20050103811

PATIENT
  Sex: Female
  Weight: 81.65 kg

DRUGS (24)
  1. INFLIXIMAB [Suspect]
     Indication: RHEUMATOID ARTHRITIS
     Route: 042
  2. METHOTREXATE [Suspect]
     Indication: DRUG USE FOR UNKNOWN INDICATION
  3. SYNTHROID [Concomitant]
  4. PREMARIN [Concomitant]
  5. PREDNISONE [Concomitant]
  6. TEVETEN [Concomitant]
  7. NORVASC [Concomitant]
  8. TOPRAL [Concomitant]
  9. QUININE SULFATE [Concomitant]
  10. FOLIC ACID [Concomitant]
  11. ASPIRIN [Concomitant]
  12. GLUCOSAMINE/CHONDROITIN [Concomitant]
  13. GLUCOSAMINE/CHONDROITIN [Concomitant]
  14. GLUCOSAMINE/CHONDROITIN [Concomitant]
  15. GLUCOSAMINE/CHONDROITIN [Concomitant]
     Dosage: 500/400 MG TWICE DAILY
  16. MULTI-VITAMINS [Concomitant]
  17. MULTI-VITAMINS [Concomitant]
  18. MULTI-VITAMINS [Concomitant]
  19. MULTI-VITAMINS [Concomitant]
  20. MULTI-VITAMINS [Concomitant]
  21. MULTI-VITAMINS [Concomitant]
  22. MULTI-VITAMINS [Concomitant]
  23. MULTI-VITAMINS [Concomitant]
  24. HYDROCHLOROTHIAZIDE [Concomitant]

REACTIONS (4)
  - COUGH [None]
  - DRUG INTERACTION [None]
  - FATIGUE [None]
  - LUNG INFILTRATION [None]
